FAERS Safety Report 5471109-9 (Version None)
Quarter: 2007Q3

REPORT INFORMATION
  Report Type: 
  Country: None (occurrence: None)
  Receive Date: 20070928
  Receipt Date: 20070918
  Transmission Date: 20080115
  Serious: Yes (Hospitalization)
  Sender: FDA-Public Use
  Company Number: CA-JNJFOC-20070803288

PATIENT
  Sex: Female
  Weight: 68.5 kg

DRUGS (8)
  1. TRABECTEDIN [Suspect]
     Dosage: CYCLE 5
     Route: 042
  2. TRABECTEDIN [Suspect]
     Indication: OVARIAN CANCER
     Route: 042
  3. DOXORUBICIN HCL [Suspect]
     Dosage: CYCLE 5
     Route: 042
  4. DOXORUBICIN HCL [Suspect]
     Indication: OVARIAN CANCER
     Route: 042
  5. LACTULOSE [Concomitant]
     Indication: CONSTIPATION PROPHYLAXIS
     Route: 048
  6. NEUPOGENE [Concomitant]
     Indication: PROPHYLAXIS
     Route: 058
  7. ATIVAN [Concomitant]
     Indication: PROPHYLAXIS
     Route: 048
  8. TYLENOL (CAPLET) [Concomitant]
     Indication: PYREXIA
     Route: 048

REACTIONS (4)
  - NAUSEA [None]
  - PYREXIA [None]
  - SYNCOPE VASOVAGAL [None]
  - VOMITING [None]
